FAERS Safety Report 25497774 (Version 1)
Quarter: 2025Q3

REPORT INFORMATION
  Report Type: Spontaneous
  Country: US (occurrence: US)
  Receive Date: 20250701
  Receipt Date: 20250701
  Transmission Date: 20251020
  Serious: No
  Sender: MERCK SHARP & DOHME LLC
  Company Number: US-009507513-2301180

PATIENT
  Age: 88 Year
  Sex: Female

DRUGS (3)
  1. BELSOMRA [Suspect]
     Active Substance: SUVOREXANT
     Indication: Insomnia
     Dosage: 10 MG, QD
     Route: 048
     Dates: start: 2025
  2. BELSOMRA [Suspect]
     Active Substance: SUVOREXANT
     Indication: Insomnia
     Route: 048
     Dates: start: 20250626
  3. ABILIFY [Concomitant]
     Active Substance: ARIPIPRAZOLE

REACTIONS (6)
  - Drug ineffective [Unknown]
  - Sedation [Unknown]
  - Therapeutic response decreased [Unknown]
  - Feeling of despair [Unknown]
  - Somnolence [Unknown]
  - Euphoric mood [Unknown]

NARRATIVE: CASE EVENT DATE: 20250101
